FAERS Safety Report 7618142-6 (Version None)
Quarter: 2011Q3

REPORT INFORMATION
  Report Type: 
  Country: None (occurrence: None)
  Receive Date: 20110718
  Receipt Date: 20110622
  Transmission Date: 20111222
  Serious: Yes (Hospitalization)
  Sender: FDA-Public Use
  Company Number: US-GLAXOSMITHKLINE-A0805740A

PATIENT
  Age: 57 Year
  Sex: Male
  Weight: 100.9 kg

DRUGS (17)
  1. ADVAIR DISKUS 100/50 [Concomitant]
  2. NEXIUM [Concomitant]
  3. METAGLIP [Concomitant]
  4. LASIX [Concomitant]
  5. VERAPAMIL [Concomitant]
  6. LISINOPRIL [Concomitant]
  7. KLOR-CON [Concomitant]
  8. ASPIRIN [Concomitant]
  9. AVANDIA [Suspect]
     Indication: TYPE 2 DIABETES MELLITUS
     Dosage: 4MG UNKNOWN
     Route: 048
  10. COMBIVENT [Concomitant]
  11. METOPROLOL TARTRATE [Concomitant]
  12. PLAVIX [Concomitant]
  13. CRESTOR [Concomitant]
  14. NITROGLYCERIN [Concomitant]
  15. ZEGERID [Concomitant]
  16. AVANDARYL [Suspect]
     Indication: TYPE 2 DIABETES MELLITUS
     Route: 048
     Dates: start: 20061114, end: 20070525
  17. JANUVIA [Concomitant]

REACTIONS (2)
  - MYOCARDIAL ISCHAEMIA [None]
  - ARRHYTHMIA [None]
